FAERS Safety Report 16606826 (Version 1)
Quarter: 2019Q3

REPORT INFORMATION
  Report Type: Spontaneous
  Country: FR (occurrence: FR)
  Receive Date: 20190722
  Receipt Date: 20190722
  Transmission Date: 20191004
  Serious: Yes (Hospitalization)
  Sender: FDA-Public Use
  Company Number: FR-B.I. PHARMACEUTICALS,INC./RIDGEFIELD-2019-12-002216

PATIENT
  Age: 97 Year
  Sex: Female

DRUGS (2)
  1. MICARDIS PLUS [Suspect]
     Active Substance: HYDROCHLOROTHIAZIDE\TELMISARTAN
     Indication: HYPERTENSION
     Route: 048
     Dates: end: 20190629
  2. PARIET [Suspect]
     Active Substance: RABEPRAZOLE SODIUM
     Indication: GASTROOESOPHAGEAL REFLUX DISEASE
     Route: 048
     Dates: end: 20190629

REACTIONS (3)
  - Hyponatraemia [Recovered/Resolved]
  - Confusional state [Recovered/Resolved]
  - Hypochloraemia [Recovered/Resolved]

NARRATIVE: CASE EVENT DATE: 20190629
